FAERS Safety Report 17774661 (Version 1)
Quarter: 2020Q2

REPORT INFORMATION
  Report Type: Spontaneous
  Country: US (occurrence: US)
  Receive Date: 20200512
  Receipt Date: 20200512
  Transmission Date: 20200714
  Serious: Yes (Hospitalization)
  Sender: FDA-Public Use
  Company Number: None

PATIENT
  Age: 48 Year
  Sex: Female

DRUGS (27)
  1. LORAZEPAM. [Concomitant]
     Active Substance: LORAZEPAM
  2. MOVANTIK [Concomitant]
     Active Substance: NALOXEGOL OXALATE
  3. TRIAMCINOLON CRE [Concomitant]
  4. CELECOXIB. [Concomitant]
     Active Substance: CELECOXIB
  5. CEPHALEXIN. [Concomitant]
     Active Substance: CEPHALEXIN
  6. FLUCONAZOLE. [Concomitant]
     Active Substance: FLUCONAZOLE
  7. AMOX/K CLAV [Concomitant]
     Active Substance: AMOXICILLIN\CLAVULANATE POTASSIUM
  8. FLUTICASONE. [Concomitant]
     Active Substance: FLUTICASONE
  9. METHYLPHENID [Concomitant]
     Active Substance: METHYLPHENIDATE
  10. AZITHROMYCIN ANHYDROUS. [Concomitant]
     Active Substance: AZITHROMYCIN ANHYDROUS
  11. CIPROFLOXACN [Concomitant]
     Active Substance: CIPROFLOXACIN
  12. PREDNISONE. [Concomitant]
     Active Substance: PREDNISONE
  13. COSENTYX [Suspect]
     Active Substance: SECUKINUMAB
     Indication: PUSTULAR PSORIASIS
     Route: 058
     Dates: start: 20200314
  14. BUPROPION. [Concomitant]
     Active Substance: BUPROPION
  15. OFLOXACIN. [Concomitant]
     Active Substance: OFLOXACIN
  16. OMEGA-3 ACIDS [Concomitant]
     Active Substance: OMEGA-3 FATTY ACIDS
  17. SSD CRE [Concomitant]
  18. SULFASALAZINE DELAYED-RELEASE [Concomitant]
     Active Substance: SULFASALAZINE
  19. CYCLOBENZAPR [Concomitant]
     Active Substance: CYCLOBENZAPRINE
  20. HYDROCO/APAP [Concomitant]
     Active Substance: ACETAMINOPHEN\HYDROCODONE
  21. METHOCARBAM [Concomitant]
     Active Substance: METHOCARBAMOL
  22. METHYLPRED [Concomitant]
     Active Substance: METHYLPREDNISOLONE
  23. PREGABALIN. [Concomitant]
     Active Substance: PREGABALIN
  24. PANTOPRAZOLE [Concomitant]
     Active Substance: PANTOPRAZOLE
  25. A-HYDROCORT [Concomitant]
     Active Substance: HYDROCORTISONE SODIUM SUCCINATE
  26. HYDROXYCHLOR [Concomitant]
     Active Substance: HYDROXYCHLOROQUINE
  27. LORZONE [Concomitant]
     Active Substance: CHLORZOXAZONE

REACTIONS (2)
  - Intestinal obstruction [None]
  - Hernia [None]

NARRATIVE: CASE EVENT DATE: 20200424
